FAERS Safety Report 6829275-6 (Version None)
Quarter: 2010Q3

REPORT INFORMATION
  Report Type: 
  Country: None (occurrence: None)
  Receive Date: 20100709
  Receipt Date: 20070307
  Transmission Date: 20110219
  Serious: No
  Sender: FDA-Public Use
  Company Number: US-PFIZER INC-2007019747

PATIENT
  Sex: Female
  Weight: 102.06 kg

DRUGS (11)
  1. CHANTIX [Suspect]
     Indication: SMOKING CESSATION THERAPY
     Dates: start: 20070201
  2. NEXIUM [Concomitant]
  3. ZETIA [Concomitant]
     Indication: BLOOD CHOLESTEROL INCREASED
  4. NORVASC [Concomitant]
  5. MAXZIDE [Concomitant]
  6. DIAZEPAM [Concomitant]
  7. METOPROLOL [Concomitant]
     Indication: HEART RATE IRREGULAR
  8. ALBUTEROL [Concomitant]
     Route: 055
  9. ACETYLSALICYLIC ACID [Concomitant]
  10. ADVAIR DISKUS 100/50 [Concomitant]
  11. ZYRTEC [Concomitant]

REACTIONS (1)
  - LIVER FUNCTION TEST ABNORMAL [None]
